FAERS Safety Report 5822473-X (Version None)
Quarter: 2008Q3

REPORT INFORMATION
  Report Type: 
  Country: None (occurrence: None)
  Receive Date: 20080725
  Receipt Date: 20080203
  Transmission Date: 20090109
  Serious: No
  Sender: FDA-Public Use
  Company Number: US-AMGEN-KDL263677

PATIENT
  Sex: Female

DRUGS (8)
  1. EPOGEN [Suspect]
     Indication: DIALYSIS
     Dates: start: 20070601
  2. SENSIPAR [Concomitant]
  3. IRON [Concomitant]
  4. OXYGEN [Concomitant]
  5. PHOSLO [Concomitant]
  6. NORVASC [Concomitant]
  7. CARDURA [Concomitant]
  8. LITHIUM [Concomitant]

REACTIONS (3)
  - ALOPECIA [None]
  - BLOOD PRESSURE INCREASED [None]
  - HAEMOGLOBIN DECREASED [None]
